FAERS Safety Report 5778980-1 (Version None)
Quarter: 2008Q2

REPORT INFORMATION
  Report Type: 
  Country: None (occurrence: None)
  Receive Date: 20080619
  Receipt Date: 20080613
  Transmission Date: 20081010
  Serious: Yes (Other)
  Sender: FDA-Public Use
  Company Number: NO-ALLERGAN-0807267US

PATIENT
  Sex: Female

DRUGS (1)
  1. DYSPORT [Suspect]
     Indication: SALIVARY HYPERSECRETION
     Dosage: 20 UNITS, UNK

REACTIONS (2)
  - JOINT DISLOCATION [None]
  - MUSCULAR WEAKNESS [None]
